FAERS Safety Report 20657692 (Version 2)
Quarter: 2022Q2

REPORT INFORMATION
  Report Type: Spontaneous
  Country: IT (occurrence: IT)
  Receive Date: 20220331
  Receipt Date: 20220405
  Transmission Date: 20220721
  Serious: Yes (Death)
  Sender: FDA-Public Use
  Company Number: IT-GW PHARMA-202203ITGW01598

PATIENT

DRUGS (3)
  1. CANNABIDIOL [Suspect]
     Active Substance: CANNABIDIOL
     Indication: Severe myoclonic epilepsy of infancy
     Dosage: 7.5 MG/KG, 600 MILLIGRAM, QD (TITRATED UP 100 MG EVERY WEEK)
     Route: 065
     Dates: start: 20211115, end: 20220220
  2. CANNABIDIOL [Suspect]
     Active Substance: CANNABIDIOL
     Dosage: 50 MILLIGRAM, BID (DOSE REDUCED FROM BY 100 MG EVERY DAY)
     Route: 065
     Dates: start: 20220220
  3. UNSPECIFIED INGREDIENT [Concomitant]
     Active Substance: UNSPECIFIED INGREDIENT
     Indication: Severe myoclonic epilepsy of infancy
     Dosage: 225 MG CUPS (3 CUPS IN THE MORNING AND 3 CUPS IN THE EVENING)
     Route: 065
     Dates: start: 2013

REACTIONS (3)
  - Sudden death [Fatal]
  - Abnormal behaviour [Unknown]
  - Drug ineffective [Unknown]

NARRATIVE: CASE EVENT DATE: 20220310
